FAERS Safety Report 12627708 (Version 1)
Quarter: 2016Q3

REPORT INFORMATION
  Report Type: Spontaneous
  Country: US (occurrence: US)
  Receive Date: 20160805
  Receipt Date: 20160805
  Transmission Date: 20161109
  Serious: Yes (Other)
  Sender: FDA-Public Use
  Company Number: US-AMGEN-USASP2016099467

PATIENT
  Age: 50 Year
  Sex: Female

DRUGS (1)
  1. ENBREL [Suspect]
     Active Substance: ETANERCEPT
     Indication: RHEUMATOID ARTHRITIS
     Dosage: UNK UNK, QWK
     Route: 065
     Dates: start: 2013

REACTIONS (7)
  - Rash [Unknown]
  - Gastrointestinal disorder [Not Recovered/Not Resolved]
  - Pharyngitis [Not Recovered/Not Resolved]
  - Immunosuppression [Unknown]
  - Vulvovaginal candidiasis [Not Recovered/Not Resolved]
  - Sensation of foreign body [Unknown]
  - Nervousness [Unknown]

NARRATIVE: CASE EVENT DATE: 201607
